FAERS Safety Report 10153233 (Version 1)
Quarter: 2014Q2

REPORT INFORMATION
  Report Type: Report from Study
  Country: US (occurrence: US)
  Receive Date: 20140505
  Receipt Date: 20140505
  Transmission Date: 20141212
  Serious: Yes (Hospitalization)
  Sender: FDA-Public Use
  Company Number: PHHY2014US051317

PATIENT
  Age: 56 Year
  Sex: Male

DRUGS (8)
  1. SCOPALAMINIE HYDROBROMIDE [Suspect]
  2. PROCHLORPERAZINE MALEATE [Suspect]
  3. CETUXIMAB [Suspect]
     Dosage: 400 MG/M2, UNK
     Dates: start: 20140130
  4. CETUXIMAB [Suspect]
     Dosage: 250 MG/M2 PER WEEK X 4 WEEKS
  5. ATIVAN [Suspect]
  6. VIBRAMYCIN//DOXYCYCLINE [Suspect]
  7. HYZAAR [Concomitant]
  8. HYDROCODONE/ACETAMINOPHEN          /00607101/ [Concomitant]

REACTIONS (4)
  - Dysphagia [Not Recovered/Not Resolved]
  - Hypophagia [Unknown]
  - Dehydration [Unknown]
  - Asthenia [Unknown]
